FAERS Safety Report 8428737-8 (Version None)
Quarter: 2012Q2

REPORT INFORMATION
  Report Type: 
  Country: None (occurrence: None)
  Receive Date: 20120606
  Receipt Date: 20120525
  Transmission Date: 20120825
  Serious: Yes (Death, Hospitalization, Other)
  Sender: FDA-Public Use
  Company Number: AUR-AOL-2010-01779

PATIENT
  Age: 50 Year
  Sex: Female

DRUGS (5)
  1. RISPERIDONE [Suspect]
     Indication: PSYCHOTIC DISORDER
  2. MIRTAZAPINE [Suspect]
     Indication: PSYCHOTIC DISORDER
  3. CLONAZEPAM [Suspect]
     Indication: PSYCHOTIC DISORDER
  4. CITALOPRAM HYDROBROMIDE [Suspect]
     Indication: PSYCHOTIC DISORDER
  5. PROCYCLIDINE HYDROCHLORIDE 2MG TAB [Suspect]
     Indication: PSYCHOTIC DISORDER

REACTIONS (8)
  - BRAIN DEATH [None]
  - PUPIL FIXED [None]
  - POLYDIPSIA PSYCHOGENIC [None]
  - RESPIRATORY ARREST [None]
  - BRAIN OEDEMA [None]
  - DEMYELINATION [None]
  - HYPONATRAEMIA [None]
  - INAPPROPRIATE ANTIDIURETIC HORMONE SECRETION [None]
